FAERS Safety Report 6368465-6 (Version None)
Quarter: 2009Q3

REPORT INFORMATION
  Report Type: 
  Country: None (occurrence: None)
  Receive Date: 20090922
  Receipt Date: 20090915
  Transmission Date: 20100115
  Serious: Yes (Hospitalization)
  Sender: FDA-Public Use
  Company Number: A0730962A

PATIENT
  Age: 74 Year
  Sex: Male
  Weight: 118.2 kg

DRUGS (10)
  1. AVANDIA [Suspect]
     Indication: TYPE 2 DIABETES MELLITUS
     Dosage: 8MG PER DAY
     Route: 048
     Dates: end: 20061003
  2. GLUCOPHAGE [Concomitant]
  3. METFORMIN HCL [Concomitant]
  4. AMARYL [Concomitant]
  5. LOVAZA [Concomitant]
  6. CINNAMON [Concomitant]
  7. VITAMIN B-12 [Concomitant]
  8. VITAMIN E [Concomitant]
  9. FOLIC ACID [Concomitant]
  10. SAW PALMETTO [Concomitant]

REACTIONS (9)
  - CORONARY ARTERY DISEASE [None]
  - HYPERHIDROSIS [None]
  - INJURY [None]
  - MYOCARDIAL INFARCTION [None]
  - NORMOCHROMIC NORMOCYTIC ANAEMIA [None]
  - OEDEMA [None]
  - OEDEMA PERIPHERAL [None]
  - PRINZMETAL ANGINA [None]
  - SINUS BRADYCARDIA [None]
